FAERS Safety Report 8328200-9 (Version None)
Quarter: 2012Q2

REPORT INFORMATION
  Report Type: 
  Country: None (occurrence: None)
  Receive Date: 20120502
  Receipt Date: 20120426
  Transmission Date: 20120825
  Serious: Yes (Other)
  Sender: FDA-Public Use
  Company Number: US-PFIZER INC-2012103861

PATIENT
  Sex: Male
  Weight: 159 kg

DRUGS (4)
  1. DIFLUCAN [Suspect]
     Indication: CELLULITIS
     Dosage: 100 MG, 2X/DAY
     Dates: end: 20100101
  2. INSULIN DETEMIR [Concomitant]
     Indication: DIABETES MELLITUS
     Dosage: 65CC DAILY
  3. LEVAQUIN [Suspect]
     Indication: CELLULITIS
     Dosage: 500 MG, DAILY
     Dates: start: 20100101
  4. METFORMIN [Concomitant]
     Indication: DIABETES MELLITUS
     Dosage: 1000 MG, 2X/DAY

REACTIONS (2)
  - CELLULITIS [None]
  - DRUG INEFFECTIVE [None]
